FAERS Safety Report 11742825 (Version 1)
Quarter: 2015Q4

REPORT INFORMATION
  Report Type: Other
  Country: JP (occurrence: JP)
  Receive Date: 20151116
  Receipt Date: 20151116
  Transmission Date: 20160304
  Serious: Yes (Other)
  Sender: FDA-Public Use
  Company Number: JP-DEP_13041_2015

PATIENT

DRUGS (3)
  1. OXYCODONE (OXYCODONE) [Suspect]
     Active Substance: OXYCODONE
     Indication: PRODUCT USED FOR UNKNOWN INDICATION
     Dosage: UNK
     Route: 048
  2. TAPENTA (TAPENTADOL) [Suspect]
     Active Substance: TAPENTADOL HYDROCHLORIDE
     Indication: PRODUCT USED FOR UNKNOWN INDICATION
     Dosage: UNK
     Route: 048
  3. TRAMADOL HYDROCHLORIDE(TRAMADOL HYDROCHLORIDE) [Suspect]
     Active Substance: TRAMADOL HYDROCHLORIDE
     Indication: PRODUCT USED FOR UNKNOWN INDICATION
     Dosage: UNK

REACTIONS (7)
  - Vomiting [Unknown]
  - Somnolence [Unknown]
  - Decreased appetite [Unknown]
  - Nausea [Unknown]
  - Monoplegia [Not Recovered/Not Resolved]
  - Constipation [Unknown]
  - Drug ineffective [Unknown]
